FAERS Safety Report 22156832 (Version 1)
Quarter: 2023Q1

REPORT INFORMATION
  Report Type: Spontaneous
  Country: JP (occurrence: JP)
  Receive Date: 20230330
  Receipt Date: 20230330
  Transmission Date: 20230417
  Serious: Yes (Other)
  Sender: FDA-Public Use
  Company Number: JP-ONO-2022JP004220

PATIENT
  Age: 80 Year
  Sex: Male
  Weight: 56 kg

DRUGS (12)
  1. YERVOY [Suspect]
     Active Substance: IPILIMUMAB
     Indication: Non-small cell lung cancer recurrent
     Dosage: UNK
     Route: 041
     Dates: start: 20210902, end: 20210902
  2. YERVOY [Suspect]
     Active Substance: IPILIMUMAB
     Dosage: UNK
     Route: 041
     Dates: start: 20211111, end: 20220106
  3. OPDIVO [Suspect]
     Active Substance: NIVOLUMAB
     Indication: Non-small cell lung cancer recurrent
     Dosage: 360 MG
     Route: 041
     Dates: start: 20210902, end: 20211014
  4. OPDIVO [Suspect]
     Active Substance: NIVOLUMAB
     Dosage: 360 MG
     Route: 041
     Dates: start: 20211111, end: 20220106
  5. ANAMORELIN HYDROCHLORIDE [Suspect]
     Active Substance: ANAMORELIN HYDROCHLORIDE
     Indication: Cachexia
     Dosage: 100 MG, EVERYDAY
     Route: 048
     Dates: start: 20210923, end: 20210929
  6. ANAMORELIN HYDROCHLORIDE [Suspect]
     Active Substance: ANAMORELIN HYDROCHLORIDE
     Dosage: 100 MG, EVERYDAY
     Route: 048
     Dates: start: 20211111, end: 20220106
  7. AMLODIPINE BESYLATE [Concomitant]
     Active Substance: AMLODIPINE BESYLATE
     Indication: Product used for unknown indication
     Dosage: 2.5 MG EVERYDAY
     Dates: end: 20220106
  8. EPALRESTAT [Concomitant]
     Active Substance: EPALRESTAT
     Indication: Product used for unknown indication
     Dosage: 150 MG EVERYDAY
     Dates: end: 20220106
  9. VONOPRAZAN FUMARATE [Concomitant]
     Active Substance: VONOPRAZAN FUMARATE
     Indication: Prophylaxis
     Dosage: 10 MG EVERYDAY
     Dates: end: 20220106
  10. LEVOTHYROXINE SODIUM [Concomitant]
     Active Substance: LEVOTHYROXINE SODIUM
     Indication: Product used for unknown indication
     Dosage: 100? G EVERYDAY
     Dates: end: 20220106
  11. ZOLPIDEM TARTRATE [Concomitant]
     Active Substance: ZOLPIDEM TARTRATE
     Indication: Prophylaxis
     Dosage: 0.625 MG, EVERYDAY
     Dates: end: 20220106
  12. MAGNESIUM OXIDE [Concomitant]
     Active Substance: MAGNESIUM OXIDE
     Indication: Prophylaxis
     Dates: end: 20220106

REACTIONS (3)
  - Hepatic function abnormal [Recovered/Resolved]
  - Thirst [Recovered/Resolved]
  - Hypokalaemia [Not Recovered/Not Resolved]

NARRATIVE: CASE EVENT DATE: 20210930
